FAERS Safety Report 8608820-4 (Version None)
Quarter: 2012Q3

REPORT INFORMATION
  Report Type: 
  Country: None (occurrence: None)
  Receive Date: 20120821
  Receipt Date: 20120817
  Transmission Date: 20120928
  Serious: No
  Sender: FDA-Public Use
  Company Number: US-PFIZER INC-2012202914

PATIENT
  Age: 81 Year
  Sex: Male
  Weight: 91.61 kg

DRUGS (4)
  1. LIPITOR [Suspect]
     Indication: BLOOD CHOLESTEROL INCREASED
     Dosage: 20 MG, DAILY
     Route: 048
     Dates: end: 20120101
  2. ENALAPRIL [Concomitant]
     Indication: BLOOD PRESSURE ABNORMAL
     Dosage: UNK
  3. WARFARIN [Concomitant]
     Indication: ANTICOAGULANT THERAPY
     Dosage: UNK
  4. ATORVASTATIN CALCIUM [Suspect]
     Indication: BLOOD CHOLESTEROL INCREASED
     Dosage: UNK
     Dates: start: 20120101

REACTIONS (2)
  - MUSCULAR WEAKNESS [None]
  - MUSCLE SPASMS [None]
